FAERS Safety Report 11546716 (Version 1)
Quarter: 2015Q3

REPORT INFORMATION
  Report Type: Spontaneous
  Country: US (occurrence: US)
  Receive Date: 20150903
  Receipt Date: 20150903
  Transmission Date: 20151125
  Serious: No
  Sender: FDA-Public Use
  Company Number: US-ELI_LILLY_AND_COMPANY-US201201003927

PATIENT
  Age: 84 Year
  Sex: Female

DRUGS (2)
  1. HUMALOG MIX75/25 [Suspect]
     Active Substance: INSULIN LISPRO
     Dosage: 22U AM, 15U PM
     Dates: start: 2005
  2. HUMALOG MIX75/25 [Suspect]
     Active Substance: INSULIN LISPRO
     Indication: DIABETES MELLITUS
     Dosage: 22U AM, 15U PM
     Dates: start: 2005

REACTIONS (7)
  - Cataract [Unknown]
  - Blood glucose decreased [Unknown]
  - Visual acuity reduced [Unknown]
  - Feeling abnormal [Recovered/Resolved]
  - Bursitis [Unknown]
  - Feeling abnormal [Unknown]
  - Arthritis [Unknown]
